FAERS Safety Report 4633460-1 (Version None)
Quarter: 2005Q2

REPORT INFORMATION
  Report Type: 
  Country: None (occurrence: None)
  Receive Date: 20050412
  Receipt Date: 20050329
  Transmission Date: 20051028
  Serious: Yes (Hospitalization)
  Sender: FDA-Public Use
  Company Number: HQWYE765102MAR05

PATIENT
  Age: 61 Year
  Sex: Male

DRUGS (10)
  1. CORDARONE [Suspect]
     Indication: ATRIAL FIBRILLATION
     Dosage: 450 MG 1X PER 1 DAY
     Route: 042
     Dates: start: 20041103, end: 20041105
  2. AMLOR (AMLODIPINE, BESILATE, ) [Suspect]
     Dosage: 10 MG 1X PER 1 DAY
     Route: 048
     Dates: start: 20041114, end: 20041123
  3. CORDARONE [Suspect]
     Indication: ATRIAL FIBRILLATION
     Dosage: SEE IMAGE
     Route: 048
     Dates: start: 20041106, end: 20041107
  4. CORDARONE [Suspect]
     Indication: ATRIAL FIBRILLATION
     Dosage: SEE IMAGE
     Route: 048
     Dates: start: 20041108, end: 20041124
  5. CORDARONE [Suspect]
     Indication: ATRIAL FIBRILLATION
     Dosage: SEE IMAGE
     Route: 048
     Dates: start: 20041125
  6. HYPERIUM (RILMENIDINE, ) [Suspect]
     Dosage: 1 MG 1X PER 1 DAY
     Route: 048
     Dates: start: 20041114, end: 20041123
  7. SECTRAL [Suspect]
     Dosage: 400 MG 1X PER 1 DAY
     Route: 048
     Dates: start: 20041119, end: 20041125
  8. TRILEPTAL [Suspect]
     Dosage: 150 MG 1X PER 1 DAY
     Route: 048
     Dates: start: 20041123, end: 20041125
  9. STABLON (TIANEPTINE) [Concomitant]
  10. ATARAX [Concomitant]

REACTIONS (6)
  - ABDOMINAL PAIN [None]
  - FLATULENCE [None]
  - HEPATITIS CHOLESTATIC [None]
  - ILEUS [None]
  - PYREXIA [None]
  - WEIGHT DECREASED [None]
